FAERS Safety Report 18657510 (Version 4)
Quarter: 2024Q3

REPORT INFORMATION
  Report Type: Spontaneous
  Country: DE (occurrence: DE)
  Receive Date: 20201224
  Receipt Date: 20240722
  Transmission Date: 20241017
  Serious: Yes (Other)
  Sender: ESPERION THERAPEUTICS
  Company Number: DE-DAIICHI SANKYO EUROPE GMBH-DSE-2020-138925

PATIENT
  Age: 69 Year
  Sex: Male
  Weight: 90 kg

DRUGS (3)
  1. BEMPEDOIC ACID\EZETIMIBE [Interacting]
     Active Substance: BEMPEDOIC ACID\EZETIMIBE
     Indication: Low density lipoprotein increased
     Dosage: 1 DF, QD (180/10MG)
     Route: 048
     Dates: start: 20201207, end: 20201228
  2. BEMPEDOIC ACID\EZETIMIBE [Interacting]
     Active Substance: BEMPEDOIC ACID\EZETIMIBE
     Indication: Hyperlipidaemia
  3. VIAGRA [Interacting]
     Active Substance: SILDENAFIL CITRATE
     Indication: Erectile dysfunction
     Dosage: UNK
     Route: 065
     Dates: start: 20201212

REACTIONS (17)
  - Eye haemorrhage [Recovering/Resolving]
  - Hypothermia [Recovered/Resolved]
  - Muscle rupture [Recovered/Resolved]
  - Chills [Recovered/Resolved]
  - Faeces hard [Recovering/Resolving]
  - Alcohol intolerance [Recovering/Resolving]
  - Anxiety [Recovering/Resolving]
  - Hyperhidrosis [Recovered/Resolved]
  - Faeces discoloured [Recovering/Resolving]
  - Hypoaesthesia [Recovering/Resolving]
  - Pruritus [Recovering/Resolving]
  - Chest pain [Not Recovered/Not Resolved]
  - Flatulence [Recovering/Resolving]
  - Myalgia [Recovered/Resolved]
  - Diarrhoea [Recovering/Resolving]
  - Abdominal discomfort [Recovering/Resolving]
  - Muscle spasms [Recovered/Resolved]

NARRATIVE: CASE EVENT DATE: 20201201
